FAERS Safety Report 7789378-9 (Version None)
Quarter: 2011Q3

REPORT INFORMATION
  Report Type: 
  Country: None (occurrence: None)
  Receive Date: 20110930
  Receipt Date: 20110921
  Transmission Date: 20111222
  Serious: Yes (Other)
  Sender: FDA-Public Use
  Company Number: US-JNJFOC-20110909878

PATIENT
  Sex: Female

DRUGS (1)
  1. TOPAMAX [Suspect]
     Indication: OBSESSIVE-COMPULSIVE DISORDER
     Route: 048
     Dates: start: 20050101, end: 20080101

REACTIONS (5)
  - DRUG INEFFECTIVE [None]
  - OFF LABEL USE [None]
  - WEIGHT INCREASED [None]
  - THYROID DISORDER [None]
  - WEIGHT DECREASED [None]
